FAERS Safety Report 6078475-4 (Version None)
Quarter: 2009Q1

REPORT INFORMATION
  Report Type: 
  Country: None (occurrence: None)
  Receive Date: 20090212
  Receipt Date: 20090212
  Transmission Date: 20090719
  Serious: Yes (Other)
  Sender: FDA-Public Use
  Company Number: None

PATIENT
  Age: 41 Year
  Sex: Female
  Weight: 61.2356 kg

DRUGS (2)
  1. NITROGLYCERIN [Suspect]
     Indication: CHEST PAIN
     Dosage: 1 PILL X3 SL
     Route: 060
     Dates: start: 20090209, end: 20090209
  2. MORPHINE [Suspect]
     Indication: CHEST PAIN
     Dosage: UNKNOWN X3 IV
     Route: 042
     Dates: start: 20090209, end: 20090209

REACTIONS (10)
  - ANOREXIA [None]
  - ASTHENIA [None]
  - BODY TEMPERATURE INCREASED [None]
  - DIZZINESS [None]
  - DRUG INTERACTION [None]
  - HEADACHE [None]
  - HYPERHIDROSIS [None]
  - NAUSEA [None]
  - OVERDOSE [None]
  - VOMITING [None]
